FAERS Safety Report 16101608 (Version 1)
Quarter: 2019Q1

REPORT INFORMATION
  Report Type: Spontaneous
  Country: US (occurrence: US)
  Receive Date: 20190321
  Receipt Date: 20190321
  Transmission Date: 20190418
  Serious: Yes (Other)
  Sender: FDA-Public Use
  Company Number: US-AKORN PHARMACEUTICALS-2019AKN00403

PATIENT
  Age: 14 Year
  Sex: Female
  Weight: 54.42 kg

DRUGS (1)
  1. MYORISAN [Suspect]
     Active Substance: ISOTRETINOIN
     Indication: ACNE CYSTIC
     Dosage: 40 MG, 1X/DAY
     Dates: start: 20190128, end: 20190225

REACTIONS (3)
  - Emotional disorder [Unknown]
  - Off label use [Recovered/Resolved]
  - Crying [Unknown]

NARRATIVE: CASE EVENT DATE: 2019
